FAERS Safety Report 25720624 (Version 1)
Quarter: 2025Q3

REPORT INFORMATION
  Report Type: Spontaneous
  Country: CN (occurrence: CN)
  Receive Date: 20250825
  Receipt Date: 20250825
  Transmission Date: 20251021
  Serious: Yes (Hospitalization)
  Sender: Haleon PLC
  Company Number: CN-HALEON-2259001

PATIENT
  Age: 30 Year
  Sex: Female
  Weight: 50 kg

DRUGS (3)
  1. IBUPROFEN [Suspect]
     Active Substance: IBUPROFEN
     Indication: Device malfunction
     Route: 048
     Dates: start: 20250727, end: 20250727
  2. LOXOPROFEN SODIUM [Suspect]
     Active Substance: LOXOPROFEN SODIUM
     Indication: Suicide attempt
     Route: 048
     Dates: start: 20250727, end: 20250727
  3. HERBALS [Suspect]
     Active Substance: HERBALS
     Indication: Suicide attempt
     Route: 048
     Dates: start: 20250727, end: 20250727

REACTIONS (2)
  - Toxicity to various agents [Recovering/Resolving]
  - Overdose [Recovering/Resolving]

NARRATIVE: CASE EVENT DATE: 20250727
